FAERS Safety Report 4428699-4 (Version None)
Quarter: 2004Q3

REPORT INFORMATION
  Report Type: 
  Country: None (occurrence: None)
  Receive Date: 20040818
  Receipt Date: 20031212
  Transmission Date: 20050211
  Serious: No
  Sender: FDA-Public Use
  Company Number: US-BRISTOL-MYERS SQUIBB COMPANY-12456893

PATIENT
  Age: 48 Year
  Sex: Female
  Weight: 107 kg

DRUGS (2)
  1. TEQUIN [Suspect]
     Indication: EYE INFECTION
     Route: 048
     Dates: start: 20031211
  2. NONE [Concomitant]

REACTIONS (3)
  - PAIN OF SKIN [None]
  - PRURITUS [None]
  - RASH ERYTHEMATOUS [None]
